FAERS Safety Report 12108988 (Version 3)
Quarter: 2016Q2

REPORT INFORMATION
  Report Type: Spontaneous
  Country: FR (occurrence: FR)
  Receive Date: 20160224
  Receipt Date: 20160412
  Transmission Date: 20160815
  Serious: Yes (Death, Hospitalization)
  Sender: FDA-Public Use
  Company Number: FR-ROCHE-1713538

PATIENT
  Age: 39 Year
  Sex: Female

DRUGS (11)
  1. PHENOBARBITAL. [Suspect]
     Active Substance: PHENOBARBITAL
     Indication: STATUS EPILEPTICUS
     Route: 048
     Dates: start: 20160117, end: 20160119
  2. RIVOTRIL [Suspect]
     Active Substance: CLONAZEPAM
     Indication: STATUS EPILEPTICUS
     Dosage: 2 MG/DAY
     Route: 048
     Dates: start: 20160118
  3. RIVOTRIL [Suspect]
     Active Substance: CLONAZEPAM
     Dosage: 4 MG/DAY
     Route: 048
     Dates: start: 20160119
  4. PHENOBARBITAL. [Suspect]
     Active Substance: PHENOBARBITAL
     Dosage: THERE WAS LOAD CHARGE OF PHENOBARBITAL THEN THE DOSE WAS MAINTAINED.
     Route: 048
     Dates: start: 20160205
  5. TRILEPTAL [Suspect]
     Active Substance: OXCARBAZEPINE
     Indication: STATUS EPILEPTICUS
     Dosage: ADMINISTERED VIA NASOGASTRIC PROBE AND DISCONTINUED DUE TO ONSET OF LIVER DAMAGE (UNAVAILABLE VALUES
     Route: 048
     Dates: start: 20160118, end: 20160204
  6. VIMPAT [Suspect]
     Active Substance: LACOSAMIDE
     Indication: STATUS EPILEPTICUS
     Dosage: ADMINISTERED VIA NASOGASTRIC PROBE.
     Route: 048
     Dates: start: 20160118, end: 20160130
  7. DILANTIN [Suspect]
     Active Substance: PHENYTOIN
     Indication: STATUS EPILEPTICUS
     Route: 042
     Dates: start: 20160117, end: 20160207
  8. KEPPRA [Suspect]
     Active Substance: LEVETIRACETAM
     Indication: STATUS EPILEPTICUS
     Route: 042
     Dates: start: 20160117, end: 20160119
  9. PHENOBARBITAL. [Suspect]
     Active Substance: PHENOBARBITAL
     Dosage: FOR 24 HOURS.
     Route: 048
     Dates: start: 20160130
  10. KEPPRA [Suspect]
     Active Substance: LEVETIRACETAM
     Route: 042
     Dates: start: 20160125
  11. PROPOFOL. [Suspect]
     Active Substance: PROPOFOL
     Indication: STATUS EPILEPTICUS
     Route: 042
     Dates: start: 20160117

REACTIONS (2)
  - Agranulocytosis [Fatal]
  - Maternal exposure during pregnancy [Unknown]

NARRATIVE: CASE EVENT DATE: 20160207
